FAERS Safety Report 8047007-3 (Version None)
Quarter: 2012Q1

REPORT INFORMATION
  Report Type: 
  Country: None (occurrence: None)
  Receive Date: 20120116
  Receipt Date: 20120111
  Transmission Date: 20120608
  Serious: Yes (Hospitalization, Other)
  Sender: FDA-Public Use
  Company Number: US-BAYER-2011-010710

PATIENT
  Sex: Female

DRUGS (1)
  1. BETASERON [Suspect]
     Indication: MULTIPLE SCLEROSIS
     Dosage: 0.3 MG, UNK

REACTIONS (6)
  - INJECTION SITE PAIN [None]
  - LOCALISED INFECTION [None]
  - GANGRENE [None]
  - PYREXIA [None]
  - LEG AMPUTATION [None]
  - PAIN [None]
